FAERS Safety Report 6400394-1 (Version None)
Quarter: 2009Q4

REPORT INFORMATION
  Report Type: 
  Country: None (occurrence: None)
  Receive Date: 20091014
  Receipt Date: 20091005
  Transmission Date: 20100525
  Serious: Yes (Death)
  Sender: FDA-Public Use
  Company Number: US-WYE-H10982909

PATIENT
  Sex: Male
  Weight: 85.81 kg

DRUGS (6)
  1. PRISTIQ [Suspect]
     Indication: MAJOR DEPRESSION
     Route: 048
     Dates: start: 20090801, end: 20090801
  2. MULTIVITAMINS, COMBINATIONS [Concomitant]
     Dosage: ORAL DROPS, ONE DAILY
  3. LUNESTA [Concomitant]
     Dosage: 3 MG AT BEDTIME
  4. MULTI-VITAMINS [Concomitant]
  5. CADUET [Concomitant]
     Dosage: 10 MG/40 MG ONE TABLET DAILY
     Route: 048
  6. DIOVAN [Concomitant]
     Dosage: 80 MG, FREQUENCY UNKNOWN

REACTIONS (2)
  - COMPLETED SUICIDE [None]
  - IMPULSIVE BEHAVIOUR [None]
